FAERS Safety Report 17620761 (Version 1)
Quarter: 2020Q2

REPORT INFORMATION
  Report Type: Spontaneous
  Country: US (occurrence: US)
  Receive Date: 20200401
  Receipt Date: 20200401
  Transmission Date: 20200713
  Serious: No
  Sender: FDA-Public Use
  Company Number: None

PATIENT
  Age: 57 Year
  Sex: Male

DRUGS (1)
  1. COPAXONE [Suspect]
     Active Substance: GLATIRAMER ACETATE
     Dosage: OTHER
     Route: 058
     Dates: start: 20200310

REACTIONS (5)
  - Skin infection [None]
  - Injection site erythema [None]
  - Injection site rash [None]
  - Injection site warmth [None]
  - Injection site pain [None]

NARRATIVE: CASE EVENT DATE: 20200310
